FAERS Safety Report 5079493-5 (Version None)
Quarter: 2006Q3

REPORT INFORMATION
  Report Type: 
  Country: None (occurrence: None)
  Receive Date: 20060814
  Receipt Date: 20050707
  Transmission Date: 20061208
  Serious: No
  Sender: FDA-Public Use
  Company Number: US-BRISTOL-MYERS SQUIBB COMPANY-13029657

PATIENT
  Sex: Female

DRUGS (2)
  1. GLUCOVANCE [Suspect]
     Indication: DIABETES MELLITUS
     Dosage: DOAGE FORM = 2 PER 1 DAY
     Dates: start: 20050702
  2. SYNTHROID [Concomitant]

REACTIONS (1)
  - VISION BLURRED [None]
